FAERS Safety Report 8543875 (Version 4)
Quarter: 2012Q4

REPORT INFORMATION
  Report Type: 
  Country: IT (occurrence: IT)
  Receive Date: 20120503
  Receipt Date: 20121004
  Transmission Date: 20130627
  Serious: Yes (Life-Threatening)
  Sender: FDA-Public Use
  Company Number: PHHY2012IT036511

PATIENT
  Age: 61 Year
  Sex: Female
  Weight: 52 kg

DRUGS (2)
  1. CERTICAN [Suspect]
     Indication: RENAL TRANSPLANT
     Dosage: 1 mg,
     Route: 048
     Dates: start: 20061127
  2. CERTICAN [Suspect]
     Dosage: 0.75 mg, UNK

REACTIONS (2)
  - Aphthous stomatitis [Recovered/Resolved]
  - Leukopenia [Recovered/Resolved]
